FAERS Safety Report 5500675-X (Version None)
Quarter: 2007Q4

REPORT INFORMATION
  Report Type: 
  Country: None (occurrence: None)
  Receive Date: 20071022
  Receipt Date: 20070716
  Transmission Date: 20080405
  Serious: No
  Sender: FDA-Public Use
  Company Number: SPV1-2007-03628

PATIENT
  Age: 5 Year
  Sex: Female
  Weight: 17.7 kg

DRUGS (2)
  1. VYVANSE [Suspect]
     Indication: ATTENTION DEFICIT/HYPERACTIVITY DISORDER
     Dosage: 30 MG,ONE DOSE, ORAL
     Route: 048
     Dates: start: 20070714, end: 20070714
  2. TOPAMAX [Concomitant]

REACTIONS (4)
  - AGGRESSION [None]
  - CRYING [None]
  - OFF LABEL USE [None]
  - TIC [None]
